FAERS Safety Report 19658492 (Version 1)
Quarter: 2021Q3

REPORT INFORMATION
  Report Type: Spontaneous
  Country: US (occurrence: US)
  Receive Date: 20210804
  Receipt Date: 20210804
  Transmission Date: 20211014
  Serious: Yes (Hospitalization, Other)
  Sender: FDA-Public Use
  Company Number: US-FRESENIUS KABI-FK202108146

PATIENT
  Age: 40 Year
  Sex: Female

DRUGS (2)
  1. VINCRISTINE [Concomitant]
     Active Substance: VINCRISTINE
     Indication: ACUTE LYMPHOCYTIC LEUKAEMIA
     Dosage: 2 MG; DAY 1
     Route: 042
  2. METHOTREXATE (MANUFACTURER UNKNOWN) [Suspect]
     Active Substance: METHOTREXATE
     Indication: ACUTE LYMPHOCYTIC LEUKAEMIA
     Dosage: 250 MG; 100 MG/M2; DAY 1
     Route: 042

REACTIONS (15)
  - Odynophagia [Unknown]
  - Tachycardia [Unknown]
  - Face oedema [Unknown]
  - Skin exfoliation [Unknown]
  - Intertrigo [Unknown]
  - Neutropenia [Unknown]
  - Pancytopenia [Recovered/Resolved]
  - Rash [Recovered/Resolved]
  - Blister [Unknown]
  - Mucosal inflammation [Unknown]
  - Vomiting [Unknown]
  - Stomatitis [Unknown]
  - Oral disorder [Unknown]
  - Drug-induced liver injury [Unknown]
  - Diarrhoea [Unknown]
